FAERS Safety Report 5417819-0 (Version None)
Quarter: 2007Q3

REPORT INFORMATION
  Report Type: 
  Country: None (occurrence: None)
  Receive Date: 20070817
  Receipt Date: 20070815
  Transmission Date: 20080115
  Serious: Yes (Life-Threatening)
  Sender: FDA-Public Use
  Company Number: PHFR2007GB02451

PATIENT
  Age: 45 Year
  Sex: Male

DRUGS (2)
  1. CLOZAPINE [Suspect]
     Route: 065
     Dates: start: 19920807, end: 20070308
  2. ZAPONEX [Suspect]
     Route: 065
     Dates: start: 20070309

REACTIONS (2)
  - ANAEMIA [None]
  - RENAL FAILURE ACUTE [None]
